FAERS Safety Report 6856811-6 (Version None)
Quarter: 2010Q3

REPORT INFORMATION
  Report Type: 
  Country: None (occurrence: None)
  Receive Date: 20100719
  Receipt Date: 20100712
  Transmission Date: 20110219
  Serious: Yes (Other)
  Sender: FDA-Public Use
  Company Number: RO-TEVA-241110ISR

PATIENT
  Age: 39 Year
  Sex: Female

DRUGS (6)
  1. DOXORUBICIN HCL [Suspect]
  2. RITUXIMAB [Suspect]
  3. CYCLOPHOSPHAMIDE [Suspect]
  4. PREDNISONE [Suspect]
  5. VINCRISTINE [Suspect]
  6. PREDNISOLONE [Suspect]

REACTIONS (1)
  - HEPATITIS C [None]
